FAERS Safety Report 9760896 (Version 1)
Quarter: 2013Q4

REPORT INFORMATION
  Report Type: Spontaneous
  Country: SE (occurrence: SE)
  Receive Date: 20131216
  Receipt Date: 20131216
  Transmission Date: 20140711
  Serious: Yes (Hospitalization)
  Sender: FDA-Public Use
  Company Number: SE-BAYER-2013-150806

PATIENT
  Age: 35 Year
  Sex: Female
  Weight: 59 kg

DRUGS (1)
  1. MIRENA [Suspect]
     Indication: CONTRACEPTION
     Dosage: 20 MCG/24HR, CONT
     Route: 015
     Dates: start: 201104

REACTIONS (4)
  - Pregnancy with contraceptive device [Not Recovered/Not Resolved]
  - Dysuria [Not Recovered/Not Resolved]
  - Device dislocation [Not Recovered/Not Resolved]
  - Drug ineffective [Not Recovered/Not Resolved]
